FAERS Safety Report 9914284 (Version 1)
Quarter: 2014Q1

REPORT INFORMATION
  Report Type: Spontaneous
  Country: US (occurrence: None)
  Receive Date: 20140218
  Receipt Date: 20140218
  Transmission Date: 20141002
  Serious: Yes (Other)
  Sender: FDA-Public Use
  Company Number: KAD201402-000145

PATIENT
  Age: 66 Year
  Sex: Male

DRUGS (3)
  1. RIBAVIRIN [Suspect]
     Indication: HEPATITIS C
  2. PEGYLATED INTERFERON [Suspect]
     Indication: HEPATITIS C
  3. TELAPREVIR [Suspect]
     Indication: HEPATITIS C

REACTIONS (4)
  - Drug reaction with eosinophilia and systemic symptoms [None]
  - Blood pressure decreased [None]
  - Roseolovirus test positive [None]
  - Herpes simplex serology positive [None]
